FAERS Safety Report 13874142 (Version 4)
Quarter: 2019Q1

REPORT INFORMATION
  Report Type: Report from Study
  Country: US (occurrence: US)
  Receive Date: 20170816
  Receipt Date: 20190131
  Transmission Date: 20190417
  Serious: Yes (Life-Threatening, Hospitalization, Other)
  Sender: FDA-Public Use
  Company Number: PHHO2017US011257

PATIENT
  Age: 15 Year
  Sex: Male
  Weight: 61 kg

DRUGS (3)
  1. GSK2118436 [Suspect]
     Active Substance: DABRAFENIB
     Indication: NEOPLASM
     Dosage: 135 MG, BID
     Route: 048
     Dates: start: 20161216, end: 20170728
  2. KEPPRA [Concomitant]
     Active Substance: LEVETIRACETAM
     Indication: PROPHYLAXIS
     Dosage: 500 MG, BID
     Route: 048
     Dates: start: 20161117
  3. GSK2118436 [Suspect]
     Active Substance: DABRAFENIB
     Dosage: 135 MG, BID
     Route: 048
     Dates: start: 20170729, end: 20170803

REACTIONS (2)
  - Haemorrhage [Recovered/Resolved]
  - Hydrocephalus [Recovered/Resolved]

NARRATIVE: CASE EVENT DATE: 20170725
